FAERS Safety Report 17244295 (Version 4)
Quarter: 2020Q2

REPORT INFORMATION
  Report Type: Spontaneous
  Country: US (occurrence: US)
  Receive Date: 20200107
  Receipt Date: 20200424
  Transmission Date: 20200713
  Serious: Yes (Other)
  Sender: FDA-Public Use
  Company Number: US-GILEAD-2019-0444757

PATIENT
  Age: 50 Year
  Sex: Male
  Weight: 61.68 kg

DRUGS (18)
  1. TRUVADA [Suspect]
     Active Substance: EMTRICITABINE\TENOFOVIR DISOPROXIL FUMARATE
     Indication: PRODUCT USED FOR UNKNOWN INDICATION
     Dosage: UNK
     Route: 048
     Dates: start: 2010, end: 2016
  2. TIVICAY [Concomitant]
     Active Substance: DOLUTEGRAVIR SODIUM
  3. DICLOFENAC [Concomitant]
     Active Substance: DICLOFENAC
  4. MENACTRA [Concomitant]
     Active Substance: NEISSERIA MENINGITIDIS GROUP A CAPSULAR POLYSACCHARIDE DIPHTHERIA TOXOID CONJUGATE ANTIGEN\NEISSERIA MENINGITIDIS GROUP C CAPSULAR POLYSACCHARIDE DIPHTHERIA TOXOID CONJUGATE ANTIGEN\NEISSERIA MENINGITIDIS GROUP W-135 CAPSULAR POLYSACCHARIDE DIPHTHERIA TOXOID CONJUGATE ANTIGEN\NEISSERIA MENINGITIDIS
  5. PREVIDENT [Concomitant]
     Active Substance: SODIUM FLUORIDE
  6. ATRIPLA [Suspect]
     Active Substance: EFAVIRENZ\EMTRICITABINE\TENOFOVIR DISOPROXIL FUMARATE
     Dosage: UNK
     Route: 065
     Dates: start: 2010, end: 2016
  7. HUMIRA [Concomitant]
     Active Substance: ADALIMUMAB
  8. SUPREP BOWEL PREP [Concomitant]
     Active Substance: MAGNESIUM SULFATE\POTASSIUM SULFATE\SODIUM SULFATE
  9. ATRIPLA [Suspect]
     Active Substance: EFAVIRENZ\EMTRICITABINE\TENOFOVIR DISOPROXIL FUMARATE
     Indication: HIV INFECTION
     Dosage: UNK
     Route: 048
     Dates: start: 201509, end: 201611
  10. DESCOVY [Concomitant]
     Active Substance: EMTRICITABINE\TENOFOVIR ALAFENAMIDE FUMARATE
  11. TRAZODONE [Concomitant]
     Active Substance: TRAZODONE HYDROCHLORIDE
  12. FLUCONAZOLE. [Concomitant]
     Active Substance: FLUCONAZOLE
  13. HARVONI [Concomitant]
     Active Substance: LEDIPASVIR\SOFOSBUVIR
  14. CHANTIX [Concomitant]
     Active Substance: VARENICLINE TARTRATE
  15. CYCLOBENZAPRINE. [Concomitant]
     Active Substance: CYCLOBENZAPRINE
  16. CEPHALEXIN [CEFALEXIN] [Concomitant]
     Active Substance: CEPHALEXIN
  17. BIKTARVY [Concomitant]
     Active Substance: BICTEGRAVIR SODIUM\EMTRICITABINE\TENOFOVIR ALAFENAMIDE FUMARATE
  18. NYSTATIN. [Concomitant]
     Active Substance: NYSTATIN

REACTIONS (11)
  - Frequent bowel movements [Unknown]
  - Emotional distress [Unknown]
  - Economic problem [Unknown]
  - Pain [Unknown]
  - Nausea [Unknown]
  - Chronic kidney disease [Not Recovered/Not Resolved]
  - Anxiety [Unknown]
  - Bone density abnormal [Unknown]
  - Anhedonia [Unknown]
  - Tooth loss [Recovered/Resolved]
  - Bone density decreased [Unknown]

NARRATIVE: CASE EVENT DATE: 201601
